FAERS Safety Report 7548081-0 (Version None)
Quarter: 2011Q2

REPORT INFORMATION
  Report Type: 
  Country: None (occurrence: None)
  Receive Date: 20110615
  Receipt Date: 20081108
  Transmission Date: 20111010
  Serious: Yes (Death, Other)
  Sender: FDA-Public Use
  Company Number: US-BAYER-200838993NA

PATIENT
  Age: 74 Year
  Sex: Male
  Weight: 99.773 kg

DRUGS (14)
  1. DILANTIN [Concomitant]
     Dosage: 400 MG DAY
     Route: 048
  2. LASIX [Concomitant]
     Dosage: 80 MG DAY
     Route: 048
  3. TRASYLOL [Suspect]
     Indication: CORONARY ARTERY BYPASS
     Route: 042
     Dates: start: 20040309
  4. PLATELETS [Concomitant]
     Dosage: 1 U, ONCE
     Route: 042
     Dates: start: 20040308
  5. PLASMA [Concomitant]
     Dosage: 2 U, ONCE
     Route: 042
     Dates: start: 20040308
  6. LOVENOX [Concomitant]
  7. TRASYLOL [Suspect]
     Indication: ANEURYSM REPAIR
     Dosage: 50 ML, Q1HR, INFUSION
     Route: 042
     Dates: start: 20040308, end: 20040308
  8. TRASYLOL [Suspect]
     Indication: POST PROCEDURAL HAEMATOMA
  9. TRASYLOL [Suspect]
     Indication: AORTIC SURGERY
  10. AMIODARONE HCL [Concomitant]
     Dosage: 200 MG DAY
     Route: 048
  11. ACETYLSALICYLIC ACID SRT [Concomitant]
     Route: 048
  12. NITROGLYCERIN [Concomitant]
     Dosage: UNK
     Route: 042
     Dates: start: 20040308, end: 20040308
  13. DIGOXIN [Concomitant]
     Dosage: 0.125 MCG DAY
     Route: 048
  14. ZOCOR [Concomitant]
     Dosage: 40 MG DAY
     Route: 048

REACTIONS (11)
  - MULTI-ORGAN FAILURE [None]
  - PAIN [None]
  - INJURY [None]
  - DEATH [None]
  - UNEVALUABLE EVENT [None]
  - ANXIETY [None]
  - EMOTIONAL DISTRESS [None]
  - STRESS [None]
  - RENAL FAILURE [None]
  - FEAR [None]
  - ANHEDONIA [None]
